FAERS Safety Report 6079583-4 (Version None)
Quarter: 2009Q1

REPORT INFORMATION
  Report Type: 
  Country: None (occurrence: None)
  Receive Date: 20090217
  Receipt Date: 20090209
  Transmission Date: 20090719
  Serious: Yes (Hospitalization)
  Sender: FDA-Public Use
  Company Number: FR-JNJFOC-20090202252

PATIENT
  Sex: Male

DRUGS (5)
  1. HALDOL [Suspect]
     Indication: AGITATION
     Route: 048
  2. ELISOR [Concomitant]
     Indication: CEREBROVASCULAR ACCIDENT
     Route: 048
  3. KARDEGIC [Concomitant]
     Indication: CEREBROVASCULAR ACCIDENT
     Route: 048
  4. ECONAZOLE NITRATE [Concomitant]
     Indication: FUNGAL INFECTION
     Route: 061
  5. SOLIAN [Concomitant]
     Indication: DRUG USE FOR UNKNOWN INDICATION
     Route: 048

REACTIONS (3)
  - BLUNTED AFFECT [None]
  - MUSCLE RIGIDITY [None]
  - PARKINSONIAN GAIT [None]
